FAERS Safety Report 14526333 (Version 1)
Quarter: 2018Q1

REPORT INFORMATION
  Report Type: Spontaneous
  Country: FR (occurrence: FR)
  Receive Date: 20180213
  Receipt Date: 20180213
  Transmission Date: 20180509
  Serious: Yes (Other)
  Sender: FDA-Public Use
  Company Number: FR-CELLTRION INC.-2018FR017833

PATIENT
  Age: 14 Year
  Sex: Female

DRUGS (1)
  1. INFLIXIMAB (UNKNOWN) [Suspect]
     Active Substance: INFLIXIMAB
     Indication: GRAFT VERSUS HOST DISEASE
     Dosage: DOSAGE FORM: LYOPHILIZED POWDER
     Route: 042

REACTIONS (2)
  - Off label use [Unknown]
  - Ileal stenosis [Recovered/Resolved]
